FAERS Safety Report 16251991 (Version 1)
Quarter: 2019Q2

REPORT INFORMATION
  Report Type: Spontaneous
  Country: FR (occurrence: FR)
  Receive Date: 20190429
  Receipt Date: 20190429
  Transmission Date: 20190711
  Serious: Yes (Other)
  Sender: FDA-Public Use
  Company Number: FR-MYLANLABS-2019M1039346

PATIENT
  Sex: Female
  Weight: 102 kg

DRUGS (16)
  1. ROPIVACAINE. [Suspect]
     Active Substance: ROPIVACAINE HYDROCHLORIDE
     Indication: LOCAL ANAESTHESIA
     Dosage: UNK
     Route: 065
     Dates: start: 20180924, end: 20180924
  2. NEFOPAM [Suspect]
     Active Substance: NEFOPAM
     Indication: TUMOUR EXCISION
     Dosage: UNK
     Route: 042
     Dates: start: 20180924, end: 20180924
  3. KETOPROFENE                        /00321701/ [Suspect]
     Active Substance: KETOPROFEN
     Indication: TUMOUR EXCISION
     Dosage: UNK
     Route: 042
     Dates: start: 20180924, end: 20180924
  4. ENANTONE LP [Suspect]
     Active Substance: LEUPROLIDE ACETATE
     Indication: BREAST CANCER METASTATIC
     Dosage: UNK
     Route: 065
     Dates: start: 201707, end: 201809
  5. DROPERIDOL. [Suspect]
     Active Substance: DROPERIDOL
     Indication: TUMOUR EXCISION
     Dosage: UNK
     Route: 042
     Dates: start: 20180924, end: 20180924
  6. CISATRACURIUM. [Suspect]
     Active Substance: CISATRACURIUM
     Indication: TUMOUR EXCISION
     Dosage: UNK
     Route: 042
     Dates: start: 20180924, end: 20180924
  7. LETROZOLE. [Suspect]
     Active Substance: LETROZOLE
     Indication: BREAST CANCER METASTATIC
     Dosage: 1 DOSAGE FORM, QD
     Route: 048
     Dates: start: 201801, end: 20181106
  8. PROPOFOL. [Suspect]
     Active Substance: PROPOFOL
     Indication: GENERAL ANAESTHESIA
     Dosage: UNK
     Route: 042
     Dates: start: 20180924, end: 20180924
  9. LYTOS [Suspect]
     Active Substance: CLODRONATE DISODIUM
     Indication: METASTASES TO BONE
     Dosage: 2 DOSAGE FORM, QD
     Route: 048
  10. DEXAMETHASONE. [Suspect]
     Active Substance: DEXAMETHASONE
     Indication: TUMOUR EXCISION
     Dosage: UNK
     Route: 065
     Dates: start: 20180924, end: 20180924
  11. PARACETAMOL [Suspect]
     Active Substance: ACETAMINOPHEN
     Indication: TUMOUR EXCISION
     Dosage: UNK
     Route: 042
     Dates: start: 20180924, end: 20180924
  12. PERJETA [Suspect]
     Active Substance: PERTUZUMAB
     Indication: BREAST CANCER METASTATIC
     Dosage: 420 MILLIGRAM
     Route: 042
     Dates: start: 201707, end: 20181106
  13. LIDOCAINE. [Suspect]
     Active Substance: LIDOCAINE
     Indication: TUMOUR EXCISION
     Dosage: UNK
     Route: 065
     Dates: start: 20180924, end: 20180924
  14. SUFENTANIL [Suspect]
     Active Substance: SUFENTANIL
     Indication: TUMOUR EXCISION
     Dosage: UNK
     Route: 065
     Dates: start: 20180924, end: 20180924
  15. HERCEPTIN [Suspect]
     Active Substance: TRASTUZUMAB
     Indication: BREAST CANCER METASTATIC
     Dosage: 600 MILLIGRAM
     Route: 058
     Dates: start: 201707, end: 20181106
  16. MORPHINE [Suspect]
     Active Substance: MORPHINE
     Indication: TUMOUR EXCISION
     Dosage: UNK
     Route: 042
     Dates: start: 20180924, end: 20180924

REACTIONS (2)
  - Oligohydramnios [Not Recovered/Not Resolved]
  - Maternal exposure during pregnancy [Unknown]

NARRATIVE: CASE EVENT DATE: 201811
